FAERS Safety Report 16919842 (Version 2)
Quarter: 2019Q4

REPORT INFORMATION
  Report Type: Report from Study
  Country: US (occurrence: US)
  Receive Date: 20191015
  Receipt Date: 20191108
  Transmission Date: 20200122
  Serious: Yes (Other)
  Sender: FDA-Public Use
  Company Number: US-ACTELION-A-NJ2019-194639

PATIENT
  Sex: Female
  Weight: 95.24 kg

DRUGS (4)
  1. OPSUMIT [Suspect]
     Active Substance: MACITENTAN
     Indication: PULMONARY ARTERIAL HYPERTENSION
     Dosage: 10 MG, QD
     Route: 048
  2. AMLODIPINE [Concomitant]
     Active Substance: AMLODIPINE BESYLATE
  3. OXYGEN. [Concomitant]
     Active Substance: OXYGEN
     Dosage: 3 L/MIN
  4. OXYGEN. [Concomitant]
     Active Substance: OXYGEN
     Dosage: 2 L/MIN

REACTIONS (5)
  - Thrombosis [Unknown]
  - Muscle spasms [Unknown]
  - Anaemia [Unknown]
  - Gastrointestinal wall abnormal [Unknown]
  - Medical device implantation [Unknown]
